FAERS Safety Report 20038126 (Version 1)
Quarter: 2021Q4

REPORT INFORMATION
  Report Type: Report from Study
  Country: AU (occurrence: AU)
  Receive Date: 20211105
  Receipt Date: 20211105
  Transmission Date: 20220303
  Serious: Yes (Other)
  Sender: FDA-Public Use
  Company Number: AU-ABBVIE-21P-008-4147975-00

PATIENT
  Sex: Male

DRUGS (9)
  1. VENETOCLAX [Suspect]
     Active Substance: VENETOCLAX
     Indication: Acute myeloid leukaemia
     Route: 048
  2. LOW DOSE CYTARABINE (NON-ABBVIE) [Concomitant]
     Indication: Acute myeloid leukaemia
     Route: 058
     Dates: start: 202107
  3. Atacanol (NON-ABBVIE) [Concomitant]
     Indication: Product used for unknown indication
  4. DIABEX (NON-ABBVIE) [Concomitant]
     Indication: Product used for unknown indication
  5. TRELEGY ELLIPTA (NON-ABBVIE) [Concomitant]
     Indication: Product used for unknown indication
  6. RABEPRAZOLE (NON-ABBVIE) [Concomitant]
     Indication: Product used for unknown indication
  7. JANUVIA (NON-ABBVIE) [Concomitant]
     Indication: Product used for unknown indication
  8. FLOMAXTRA (TAMSULOSIN) (NON-ABBVIE) [Concomitant]
     Indication: Product used for unknown indication
  9. LIPITOR (ATORVASTATIN) (NON-ABBVIE) [Concomitant]
     Indication: Product used for unknown indication

REACTIONS (2)
  - Myelosuppression [Unknown]
  - Myelosuppression [Unknown]

NARRATIVE: CASE EVENT DATE: 20210101
